FAERS Safety Report 21695001 (Version 1)
Quarter: 2022Q4

REPORT INFORMATION
  Report Type: Report from Study
  Country: US (occurrence: US)
  Receive Date: 20221207
  Receipt Date: 20221207
  Transmission Date: 20230113
  Serious: No
  Sender: FDA-Public Use
  Company Number: US-ABBVIE-4192750

PATIENT
  Sex: Female

DRUGS (1)
  1. RINVOQ [Suspect]
     Active Substance: UPADACITINIB
     Indication: Rheumatoid arthritis
     Route: 048

REACTIONS (4)
  - Influenza [Recovering/Resolving]
  - Respiratory syncytial virus infection [Recovered/Resolved]
  - Uterine leiomyoma [Recovered/Resolved]
  - Cyst [Recovered/Resolved]
